FAERS Safety Report 4883104-9 (Version None)
Quarter: 2006Q1

REPORT INFORMATION
  Report Type: 
  Country: None (occurrence: None)
  Receive Date: 20060113
  Receipt Date: 20060105
  Transmission Date: 20060701
  Serious: Yes (Hospitalization)
  Sender: FDA-Public Use
  Company Number: 2005-04-1558

PATIENT
  Age: 33 Year
  Sex: Male
  Weight: 83 kg

DRUGS (2)
  1. VIRAFERONPEG [Suspect]
     Indication: HEPATITIS C
     Dosage: QW SUBCUTANEOUS
     Route: 058
     Dates: start: 20040101, end: 20041201
  2. REBETOL [Suspect]
     Indication: HEPATITIS C
     Dosage: 1200 MG QD ORAL
     Route: 048
     Dates: end: 20041216

REACTIONS (12)
  - ERYTHEMA [None]
  - FEELING HOT [None]
  - INJECTION SITE NECROSIS [None]
  - INJECTION SITE REACTION [None]
  - LYMPHADENOPATHY [None]
  - NECROTISING PANNICULITIS [None]
  - OEDEMA PERIPHERAL [None]
  - PAIN IN EXTREMITY [None]
  - POST PROCEDURAL COMPLICATION [None]
  - SCAB [None]
  - SKIN LESION [None]
  - SKIN ULCER [None]
